FAERS Safety Report 7380807-1 (Version None)
Quarter: 2011Q1

REPORT INFORMATION
  Report Type: 
  Country: None (occurrence: None)
  Receive Date: 20110329
  Receipt Date: 20110322
  Transmission Date: 20110831
  Serious: Yes (Other)
  Sender: FDA-Public Use
  Company Number: A0915072A

PATIENT
  Age: 62 Year
  Sex: Male
  Weight: 104.1 kg

DRUGS (6)
  1. LEVOTHYROXINE SODIUM [Concomitant]
     Indication: HYPOTHYROIDISM
  2. ZYRTEC [Concomitant]
     Dosage: 10MG PER DAY
  3. DIOVAN [Concomitant]
     Indication: HYPERTENSION
  4. ALBUTEROL [Concomitant]
  5. SINGULAIR [Concomitant]
  6. ADVAIR DISKUS 100/50 [Suspect]
     Indication: ASTHMA
     Route: 055
     Dates: start: 20020101, end: 20101027

REACTIONS (2)
  - FAMILIAL TREMOR [None]
  - TREMOR [None]
